FAERS Safety Report 13590291 (Version 2)
Quarter: 2017Q2

REPORT INFORMATION
  Report Type: Spontaneous
  Country: DE (occurrence: DE)
  Receive Date: 20170530
  Receipt Date: 20170530
  Transmission Date: 20170830
  Serious: Yes (Hospitalization)
  Sender: FDA-Public Use
  Company Number: DE-LHC-2017116

PATIENT
  Sex: Male

DRUGS (1)
  1. CONOXIA [Suspect]
     Active Substance: OXYGEN
     Indication: PRODUCT USED FOR UNKNOWN INDICATION

REACTIONS (2)
  - Transmission of an infectious agent via product [Unknown]
  - Pseudomonas infection [Unknown]
